FAERS Safety Report 22297473 (Version 2)
Quarter: 2023Q2

REPORT INFORMATION
  Report Type: Report from Study
  Country: CO (occurrence: CO)
  Receive Date: 20230509
  Receipt Date: 20230531
  Transmission Date: 20230721
  Serious: Yes (Death, Life-Threatening, Hospitalization, Other)
  Sender: FDA-Public Use
  Company Number: CO-AMGEN-COLSL2023078193

PATIENT
  Age: 55 Year
  Sex: Male

DRUGS (1)
  1. VECTIBIX [Suspect]
     Active Substance: PANITUMUMAB
     Indication: Colorectal cancer metastatic
     Dosage: 310 MILLIGRAM, Q2WK (BIWEEKLY)
     Route: 042
     Dates: start: 20220314, end: 20230315

REACTIONS (3)
  - Cardiopulmonary failure [Fatal]
  - Oedema peripheral [Recovering/Resolving]
  - Asthenia [Recovering/Resolving]

NARRATIVE: CASE EVENT DATE: 20230517
